FAERS Safety Report 8660640 (Version 6)
Quarter: 2013Q1

REPORT INFORMATION
  Report Type: Report from Study
  Country: JP (occurrence: JP)
  Receive Date: 20120711
  Receipt Date: 20130104
  Transmission Date: 20140127
  Serious: Yes (Hospitalization)
  Sender: FDA-Public Use
  Company Number: JP-009507513-1201USA01403

PATIENT
  Age: 70 Year
  Sex: Female
  Weight: 42.1 kg

DRUGS (24)
  1. VANIPREVIR [Suspect]
     Indication: CHRONIC HEPATITIS C
     Dosage: 300 MG, BID
     Route: 048
     Dates: start: 20111207, end: 20111230
  2. VANIPREVIR [Suspect]
     Dosage: 300 MG, BID
     Dates: start: 20120117, end: 20120403
  3. VANIPREVIR [Suspect]
     Dosage: 300 MG, BID
     Dates: start: 20120417, end: 20120424
  4. VANIPREVIR [Suspect]
     Dosage: 300 MG, BID
     Dates: start: 20120425, end: 20120521
  5. PEGINTERFERON ALFA-2B [Suspect]
     Indication: CHRONIC HEPATITIS C
     Dosage: 80 MICROGRAM, QW
     Dates: start: 20111207, end: 20111227
  6. PEGINTERFERON ALFA-2B [Suspect]
     Dosage: 80 MICROGRAM, QW
     Dates: start: 20120117, end: 20120131
  7. PEGINTERFERON ALFA-2B [Suspect]
     Dosage: 54 MICROGRAM, QW
     Dates: start: 20120207, end: 20120207
  8. PEGINTERFERON ALFA-2B [Suspect]
     Dosage: 80 MICROGRAM, QW
     Dates: start: 20120214, end: 20120221
  9. PEGINTERFERON ALFA-2B [Suspect]
     Dosage: 54 MICROGRAM, QW
     Dates: start: 20120228, end: 20120228
  10. PEGINTERFERON ALFA-2B [Suspect]
     Dosage: 80 MICROGRAM, QW
     Dates: start: 20120306, end: 20120515
  11. RIBAVIRIN [Suspect]
     Indication: CHRONIC HEPATITIS C
     Dosage: UNK
     Dates: start: 20111207, end: 20111231
  12. RIBAVIRIN [Suspect]
     Dosage: UNK
     Dates: start: 20120117, end: 20120521
  13. FORTEO [Concomitant]
     Indication: OSTEOPOROSIS
     Dosage: 20 MICROGRAM, QD
     Route: 058
     Dates: start: 20110530
  14. GASTER D [Concomitant]
     Indication: GASTRITIS PROPHYLAXIS
     Dosage: 20 MG, QD
     Route: 048
     Dates: start: 20110627
  15. CELECOX [Concomitant]
     Indication: ARTHRALGIA
     Dosage: 100 MG, BID
     Route: 048
     Dates: start: 20110627
  16. MOHRUS [Concomitant]
     Indication: ARTHRALGIA
     Dosage: UNK, PRN
     Route: 062
     Dates: start: 20110927
  17. ALLEGRA [Concomitant]
     Indication: URTICARIA
     Dosage: 60 MG, BID
     Route: 048
     Dates: start: 20110412
  18. TALION (BEPOTASTINE BESYLATE) [Concomitant]
     Indication: URTICARIA
     Dosage: 10 MG, BID
     Route: 048
     Dates: start: 20120321
  19. RINDERON V [Concomitant]
     Indication: URTICARIA
     Dosage: UNK UNK, PRN
     Route: 062
     Dates: start: 20120321
  20. HIRUDOID [Concomitant]
     Indication: URTICARIA
     Dosage: UNK UNK, PRN
     Route: 062
     Dates: start: 20120509
  21. LOXOPROFEN [Concomitant]
     Indication: PYREXIA
     Dosage: UNK, PRN
     Route: 048
     Dates: start: 20111207
  22. SELBEX [Concomitant]
     Indication: PYREXIA
     Dosage: UNK, PRN
     Route: 048
     Dates: start: 20111207
  23. PRIMPERAN [Concomitant]
     Indication: NAUSEA
     Dosage: 10 MG, BID
     Route: 048
     Dates: start: 20111212
  24. GASMOTIN [Concomitant]
     Indication: NAUSEA
     Dosage: 5 MG, TID
     Route: 048
     Dates: start: 20120327

REACTIONS (1)
  - Chondrocalcinosis pyrophosphate [Recovered/Resolved]
